FAERS Safety Report 6775729-0 (Version None)
Quarter: 2010Q2

REPORT INFORMATION
  Report Type: 
  Country: None (occurrence: None)
  Receive Date: 20100617
  Receipt Date: 20100609
  Transmission Date: 20101027
  Serious: Yes (Hospitalization, Disabling, Other)
  Sender: FDA-Public Use
  Company Number: US-ABBOTT-10P-163-0649677-00

PATIENT
  Sex: Male
  Weight: 77.634 kg

DRUGS (10)
  1. HUMIRA [Suspect]
     Indication: RHEUMATOID ARTHRITIS
     Route: 058
     Dates: start: 20100106, end: 20100417
  2. ENBREL [Suspect]
     Indication: RHEUMATOID ARTHRITIS
     Dates: start: 20090901, end: 20091101
  3. PREDNISONE [Suspect]
     Indication: ASTHENIA
     Dosage: 80MG DAILY
     Route: 048
     Dates: start: 20100517, end: 20100521
  4. PREDNISONE [Suspect]
     Indication: HYPOAESTHESIA
     Dosage: 50 MG DAILY
     Route: 048
     Dates: start: 20100521, end: 20100528
  5. AVAPRO [Concomitant]
     Indication: HYPERTENSION
  6. ANDROGEL [Concomitant]
     Indication: BLOOD TESTOSTERONE ABNORMAL
  7. ALLOPURINOL [Concomitant]
     Indication: DRUG USE FOR UNKNOWN INDICATION
     Dosage: 1/2 TAB DAILY
  8. MAXZIDE [Concomitant]
     Indication: HYPERTENSION
     Dosage: 1/2 TAB DAILY
  9. OXYCONTIN [Concomitant]
     Indication: RHEUMATOID ARTHRITIS
     Route: 048
  10. TYLENOL [Concomitant]
     Indication: RHEUMATOID ARTHRITIS

REACTIONS (17)
  - ABASIA [None]
  - COORDINATION ABNORMAL [None]
  - DEMYELINATION [None]
  - DYSPHAGIA [None]
  - EROSIVE OESOPHAGITIS [None]
  - GASTROINTESTINAL DISORDER [None]
  - GASTROOESOPHAGEAL REFLUX DISEASE [None]
  - GUILLAIN-BARRE SYNDROME [None]
  - HYPOAESTHESIA [None]
  - MUSCLE SPASTICITY [None]
  - MUSCULAR WEAKNESS [None]
  - NAUSEA [None]
  - PERISTALSIS VISIBLE [None]
  - SENSORY DISTURBANCE [None]
  - TONGUE BITING [None]
  - VOMITING [None]
  - WEIGHT DECREASED [None]
